FAERS Safety Report 7497503-2 (Version None)
Quarter: 2011Q2

REPORT INFORMATION
  Report Type: 
  Country: None (occurrence: None)
  Receive Date: 20110523
  Receipt Date: 20110512
  Transmission Date: 20111010
  Serious: Yes (Death)
  Sender: FDA-Public Use
  Company Number: GB-UCBSA-030170

PATIENT
  Sex: Female
  Weight: 57 kg

DRUGS (5)
  1. FERROUS SULFATE TAB [Concomitant]
     Route: 048
     Dates: start: 20041103
  2. KEPPRA [Suspect]
     Indication: EPILEPSY
     Dosage: DAILY
     Route: 048
     Dates: start: 20041103
  3. MULTI-VITAMINS [Concomitant]
     Indication: ALCOHOL ABUSE
     Route: 048
     Dates: start: 20041103
  4. VALPROATE SODIUM [Concomitant]
     Indication: EPILEPSY
     Route: 048
     Dates: start: 20030626, end: 20040419
  5. THIAMINE [Concomitant]
     Indication: ALCOHOL ABUSE
     Route: 048
     Dates: start: 20041103

REACTIONS (1)
  - DEATH [None]
